FAERS Safety Report 14011162 (Version 1)
Quarter: 2017Q3

REPORT INFORMATION
  Report Type: Spontaneous
  Country: FR (occurrence: FR)
  Receive Date: 20170926
  Receipt Date: 20170926
  Transmission Date: 20171128
  Serious: Yes (Other)
  Sender: FDA-Public Use
  Company Number: FR-MERCK KGAA-2027665

PATIENT
  Age: 35 Year
  Sex: Female

DRUGS (3)
  1. NOVOTHYROX [Suspect]
     Active Substance: LEVOTHYROXINE SODIUM
     Route: 048
     Dates: start: 20170514
  2. LEXOMIL(BROMAZEPAM)(BROMAZEPA-M) [Concomitant]
  3. BILASKA (BILASTINE) [Concomitant]

REACTIONS (8)
  - Weight increased [None]
  - Acne [None]
  - Diffuse alopecia [None]
  - Vertigo [None]
  - Hunger [None]
  - Insomnia [None]
  - Blood thyroid stimulating hormone increased [Recovered/Resolved]
  - Asthenia [None]

NARRATIVE: CASE EVENT DATE: 20170608
